FAERS Safety Report 4322040-3 (Version None)
Quarter: 2004Q1

REPORT INFORMATION
  Report Type: 
  Country: None (occurrence: None)
  Receive Date: 20040319
  Receipt Date: 20040305
  Transmission Date: 20041129
  Serious: Yes (Hospitalization, Disabling, Other)
  Sender: FDA-Public Use
  Company Number: 200401611

PATIENT
  Age: 51 Year
  Sex: Male

DRUGS (2)
  1. OCUFLOX [Suspect]
     Indication: ENDOPHTHALMITIS
     Dosage: 1 DROP Q1HR EYE
     Dates: start: 20040209
  2. FLOXIN [Suspect]
     Indication: ENDOPHTHALMITIS
     Dosage: 1 DROP Q1HR EYE
     Dates: start: 20040208, end: 20040209

REACTIONS (3)
  - DRUG TOXICITY [None]
  - EYE OPERATION [None]
  - MEDICATION ERROR [None]
